FAERS Safety Report 25843718 (Version 4)
Quarter: 2025Q4

REPORT INFORMATION
  Report Type: Report from Study
  Country: US (occurrence: US)
  Receive Date: 20250924
  Receipt Date: 20251231
  Transmission Date: 20260118
  Serious: Yes (Other)
  Sender: ABBVIE
  Company Number: US-ABBVIE-6397548

PATIENT
  Age: 71 Year
  Sex: Male

DRUGS (3)
  1. CREON [Suspect]
     Active Substance: PANCRELIPASE AMYLASE\PANCRELIPASE LIPASE\PANCRELIPASE PROTEASE
     Indication: Pancreatic failure
     Route: 048
     Dates: start: 20250717
  2. CREON [Suspect]
     Active Substance: PANCRELIPASE AMYLASE\PANCRELIPASE LIPASE\PANCRELIPASE PROTEASE
     Indication: Pancreatic failure
     Route: 048
  3. CREON [Suspect]
     Active Substance: PANCRELIPASE AMYLASE\PANCRELIPASE LIPASE\PANCRELIPASE PROTEASE
     Indication: Pancreatic failure
     Route: 048

REACTIONS (19)
  - Cholecystectomy [Unknown]
  - Diarrhoea [Not Recovered/Not Resolved]
  - Pancreatic cyst [Unknown]
  - Gastroenteritis viral [Recovering/Resolving]
  - Nausea [Recovered/Resolved]
  - Blood sodium decreased [Recovered/Resolved]
  - False negative investigation result [Recovered/Resolved]
  - Faeces hard [Unknown]
  - Lipase increased [Not Recovered/Not Resolved]
  - Walled-off pancreatic necrosis [Unknown]
  - Pancreatic pseudocyst [Unknown]
  - Pancreatitis [Unknown]
  - Gastric operation [Unknown]
  - Intestinal operation [Unknown]
  - Liver operation [Unknown]
  - Amylase increased [Not Recovered/Not Resolved]
  - Peripancreatic fluid collection [Unknown]
  - Gastrointestinal wall thickening [Unknown]
  - Pancreatic disorder [Not Recovered/Not Resolved]

NARRATIVE: CASE EVENT DATE: 20250101
